FAERS Safety Report 8793713 (Version 1)
Quarter: 2012Q4

REPORT INFORMATION
  Report Type: 
  Country: US (occurrence: US)
  Receive Date: 20120918
  Receipt Date: 20120918
  Transmission Date: 20130627
  Serious: Yes (Other)
  Sender: FDA-Public Use
  Company Number: US-MERCK-1209USA006063

PATIENT

DRUGS (7)
  1. SAPHRIS [Suspect]
     Dosage: 10 mg, hs
     Route: 060
  2. SAPHRIS [Suspect]
     Dosage: UNK
     Route: 060
  3. GEODON [Suspect]
  4. VENLAFAXINE HYDROCHLORIDE [Suspect]
     Dosage: 225 mg, UNK
  5. VENLAFAXINE HYDROCHLORIDE [Concomitant]
     Dosage: 100 mg, qid
  6. SEROQUEL [Concomitant]
     Dosage: 100 mg, UNK
     Route: 065
  7. SEROQUEL [Concomitant]
     Dosage: UNK

REACTIONS (14)
  - Feeling abnormal [Unknown]
  - Insomnia [Unknown]
  - Tachyphrenia [Unknown]
  - Disorientation [Unknown]
  - Blood cholesterol increased [Unknown]
  - Migraine [Unknown]
  - Nausea [Unknown]
  - Inappropriate schedule of drug administration [Unknown]
  - Weight increased [Unknown]
  - Dizziness [Unknown]
  - Psychomotor hyperactivity [Unknown]
  - Fatigue [Unknown]
  - Vomiting [Unknown]
  - Paranoia [Unknown]
